FAERS Safety Report 5662875-8 (Version None)
Quarter: 2008Q1

REPORT INFORMATION
  Report Type: 
  Country: None (occurrence: None)
  Receive Date: 20080313
  Receipt Date: 20080228
  Transmission Date: 20080703
  Serious: Yes (Hospitalization)
  Sender: FDA-Public Use
  Company Number: JP-ASTRAZENECA-2008AP00575

PATIENT
  Age: 17 Year
  Sex: Male

DRUGS (3)
  1. SEROQUEL [Suspect]
     Indication: TENSION
     Route: 048
     Dates: start: 20071218, end: 20071219
  2. LEXOTAN [Concomitant]
     Indication: ANXIETY
     Route: 048
     Dates: start: 20071218, end: 20071219
  3. AMOXAN [Concomitant]
     Indication: DEPRESSED MOOD
     Route: 048
     Dates: start: 20071218, end: 20071219

REACTIONS (5)
  - BLOOD PRESSURE DECREASED [None]
  - DEPRESSED LEVEL OF CONSCIOUSNESS [None]
  - DYSPNOEA [None]
  - MIOSIS [None]
  - SEDATION [None]
